FAERS Safety Report 25532158 (Version 1)
Quarter: 2025Q3

REPORT INFORMATION
  Report Type: Spontaneous
  Country: US (occurrence: US)
  Receive Date: 20250709
  Receipt Date: 20250709
  Transmission Date: 20251021
  Serious: No
  Sender: SANOFI AVENTIS
  Company Number: US-SA-2025SA192675

PATIENT
  Age: 58 Year
  Sex: Female

DRUGS (4)
  1. DUPIXENT [Suspect]
     Active Substance: DUPILUMAB
     Indication: Asthma
     Dosage: 300 MG, QOW
     Route: 058
     Dates: start: 202006
  2. DUPIXENT [Suspect]
     Active Substance: DUPILUMAB
     Indication: Alopecia areata
  3. DUPIXENT [Suspect]
     Active Substance: DUPILUMAB
     Indication: Alopecia universalis
  4. DUPIXENT [Suspect]
     Active Substance: DUPILUMAB
     Indication: Osteoarthritis

REACTIONS (3)
  - Asthma [Recovering/Resolving]
  - Dyspnoea [Recovering/Resolving]
  - Product use in unapproved indication [Unknown]

NARRATIVE: CASE EVENT DATE: 20200601
